FAERS Safety Report 11197238 (Version 1)
Quarter: 2015Q2

REPORT INFORMATION
  Report Type: Spontaneous
  Country: US (occurrence: US)
  Receive Date: 20150617
  Receipt Date: 20150617
  Transmission Date: 20150821
  Serious: No
  Sender: FDA-Public Use
  Company Number: US-SA-2015SA006135

PATIENT
  Age: 25 Year
  Sex: Female
  Weight: 86.7 kg

DRUGS (1)
  1. CEREZYME [Suspect]
     Active Substance: IMIGLUCERASE
     Indication: GAUCHER^S DISEASE
     Dosage: DOSE:60 UNIT(S)/KILOGRAM BODYWEIGHT
     Route: 041

REACTIONS (3)
  - Throat tightness [Unknown]
  - Hypersensitivity [Unknown]
  - Feeling hot [Unknown]

NARRATIVE: CASE EVENT DATE: 20150113
